FAERS Safety Report 18482408 (Version 1)
Quarter: 2020Q4

REPORT INFORMATION
  Report Type: Spontaneous
  Country: US (occurrence: US)
  Receive Date: 20201110
  Receipt Date: 20201110
  Transmission Date: 20210114
  Serious: Yes (Death, Hospitalization, Disabling, Other)
  Sender: FDA-Public Use
  Company Number: US-DRREDDYS-USA/USA/20/0128858

PATIENT
  Age: 3 Year
  Sex: Female

DRUGS (7)
  1. ETOPOSIDE. [Suspect]
     Active Substance: ETOPOSIDE
     Indication: NEPHROBLASTOMA
     Dosage: ACCORDING TO THE COG PROTOCOL AREN0321 REGIMEN I (SALVAGE REGIMEN)
     Route: 065
  2. DEXAMETHASONE SODIUM PHOSPHATE INJECTION, 4 MG/ML [Suspect]
     Active Substance: DEXAMETHASONE SODIUM PHOSPHATE
     Indication: PRODUCT USED FOR UNKNOWN INDICATION
     Dosage: ACCORDING TO THE COG PROTOCOL AREN0321 REGIMEN I (SALVAGE REGIMEN)
     Route: 065
  3. VINCRISTINE [Suspect]
     Active Substance: VINCRISTINE
     Indication: NEPHROBLASTOMA
     Dosage: ACCORDING TO THE COG PROTOCOL AREN0321 REGIMEN I (SALVAGE REGIMEN)
     Route: 065
  4. FOSPHENYTOIN SODIUM. [Suspect]
     Active Substance: FOSPHENYTOIN SODIUM
     Indication: PRODUCT USED FOR UNKNOWN INDICATION
     Dosage: ACCORDING TO THE COG PROTOCOL AREN0321 REGIMEN I (SALVAGE REGIMEN)
     Route: 065
  5. DOXORUBICIN HYDROCHLORIDE LIPOSOME INJECTION 20 MG/10 ML (2 MG/ML) AND [Suspect]
     Active Substance: DOXORUBICIN HYDROCHLORIDE
     Indication: NEPHROBLASTOMA
     Dosage: ACCORDING TO THE COG PROTOCOL AREN0321 REGIMEN I (SALVAGE REGIMEN)
  6. CYCLOPHOSPHAMIDE. [Suspect]
     Active Substance: CYCLOPHOSPHAMIDE
     Indication: NEPHROBLASTOMA
     Dosage: ACCORDING TO THE COG PROTOCOL AREN0321 REGIMEN I (SALVAGE REGIMEN)
     Route: 065
  7. LEVETIRACETAM. [Suspect]
     Active Substance: LEVETIRACETAM
     Indication: PRODUCT USED FOR UNKNOWN INDICATION
     Dosage: ACCORDING TO THE COG PROTOCOL AREN0321 REGIMEN I (SALVAGE REGIMEN)
     Route: 048

REACTIONS (16)
  - Metastases to liver [Fatal]
  - Cytomegalovirus infection [Fatal]
  - Drug ineffective [Unknown]
  - Septic shock [Fatal]
  - Diffuse large B-cell lymphoma [Fatal]
  - Bone marrow necrosis [Fatal]
  - Epstein-Barr virus associated lymphoproliferative disorder [Fatal]
  - Cerebral artery embolism [Fatal]
  - Epstein-Barr virus infection [Fatal]
  - Seizure [Unknown]
  - Hemiparesis [Unknown]
  - Liver abscess [Unknown]
  - Secondary immunodeficiency [Fatal]
  - Cerebral haemorrhage [Fatal]
  - Metastases to gastrointestinal tract [Fatal]
  - Metastases to central nervous system [Fatal]
